FAERS Safety Report 19835369 (Version 1)
Quarter: 2021Q3

REPORT INFORMATION
  Report Type: Spontaneous
  Country: US (occurrence: US)
  Receive Date: 20210914
  Receipt Date: 20210914
  Transmission Date: 20211014
  Serious: Yes (Life-Threatening, Other)
  Sender: FDA-Public Use
  Company Number: US-JNJFOC-20210918741

PATIENT
  Sex: Female
  Weight: 41 kg

DRUGS (1)
  1. RYBREVANT [Suspect]
     Active Substance: AMIVANTAMAB-VMJW
     Indication: NON-SMALL CELL LUNG CANCER
     Route: 065
     Dates: start: 20210909, end: 20210909

REACTIONS (2)
  - Infusion related reaction [Recovering/Resolving]
  - Oxygen saturation decreased [Unknown]

NARRATIVE: CASE EVENT DATE: 20210909
